FAERS Safety Report 16891721 (Version 2)
Quarter: 2019Q4

REPORT INFORMATION
  Report Type: Spontaneous
  Country: US (occurrence: US)
  Receive Date: 20191007
  Receipt Date: 20191206
  Transmission Date: 20200122
  Serious: Yes (Life-Threatening, Hospitalization, Disabling, Other)
  Sender: FDA-Public Use
  Company Number: US-SA-2019SA276912

PATIENT
  Age: 77 Year
  Sex: Male
  Weight: 101.2 kg

DRUGS (7)
  1. PLAVIX [Suspect]
     Active Substance: CLOPIDOGREL BISULFATE
     Indication: CORONARY ARTERY DISEASE
  2. ELIQUIS [Suspect]
     Active Substance: APIXABAN
     Indication: CAROTID ARTERY STENOSIS
     Dosage: 5 MG, BID
     Route: 048
     Dates: start: 20180420, end: 20181218
  3. PLAVIX [Suspect]
     Active Substance: CLOPIDOGREL BISULFATE
     Indication: ATRIAL FIBRILLATION
     Dosage: 75 MG, QD
     Route: 048
     Dates: start: 20160705, end: 20181218
  4. ELIQUIS [Suspect]
     Active Substance: APIXABAN
     Indication: CAROTID ARTERY DISEASE
  5. DIOVAN [Concomitant]
     Active Substance: VALSARTAN
     Indication: CARDIAC FAILURE
     Dosage: UNK UNK, UNK
     Dates: start: 20181218
  6. PLAVIX [Suspect]
     Active Substance: CLOPIDOGREL BISULFATE
     Indication: CAROTID ARTERY STENOSIS
  7. ELIQUIS [Suspect]
     Active Substance: APIXABAN
     Indication: ATRIAL FIBRILLATION

REACTIONS (21)
  - Cerebrovascular accident [Recovered/Resolved with Sequelae]
  - Melaena [Unknown]
  - Arteriovenous malformation [Unknown]
  - Memory impairment [Recovered/Resolved with Sequelae]
  - Brain natriuretic peptide increased [Unknown]
  - Coronavirus test positive [Unknown]
  - Respiratory tract haemorrhage [Recovered/Resolved]
  - Cerebrovascular accident [Recovered/Resolved with Sequelae]
  - Facial paralysis [Unknown]
  - Haemoglobin decreased [Unknown]
  - Unevaluable event [Unknown]
  - Hemiparesis [Recovered/Resolved with Sequelae]
  - Speech disorder [Recovered/Resolved with Sequelae]
  - Off label use [Unknown]
  - Laryngeal haemorrhage [Recovered/Resolved]
  - Anaemia [Unknown]
  - Carotid artery stenosis [Unknown]
  - Drug ineffective [Unknown]
  - Haemoptysis [Recovered/Resolved]
  - Mobility decreased [Recovered/Resolved with Sequelae]
  - Facial paresis [Unknown]

NARRATIVE: CASE EVENT DATE: 20181215
